FAERS Safety Report 8960032 (Version 1)
Quarter: 2012Q4

REPORT INFORMATION
  Report Type: 
  Country: JP (occurrence: JP)
  Receive Date: 20121212
  Receipt Date: 20121212
  Transmission Date: 20130627
  Serious: Yes (Disabling)
  Sender: FDA-Public Use
  Company Number: JP-PFIZER INC-2012311590

PATIENT

DRUGS (2)
  1. ATENOLOL [Suspect]
     Dosage: 25 mg, UNK
     Route: 048
  2. OMEPRAL [Concomitant]
     Dosage: UNK
     Route: 048

REACTIONS (1)
  - Melanoderma [Unknown]
